FAERS Safety Report 7317954-6 (Version None)
Quarter: 2011Q1

REPORT INFORMATION
  Report Type: 
  Country: None (occurrence: None)
  Receive Date: 20110226
  Receipt Date: 20110131
  Transmission Date: 20110831
  Serious: No
  Sender: FDA-Public Use
  Company Number: US-B.I. PHARMACEUTICALS,INC./RIDGEFIELD-2011-BP-03117BP

PATIENT
  Sex: Male

DRUGS (11)
  1. OMNARIS [Concomitant]
     Indication: NASAL DISORDER
  2. HYDROCHLOROTHIAZIDE [Concomitant]
     Indication: HYPERTENSION
  3. AEROBID [Concomitant]
     Indication: ASTHMA
  4. ACCOLATE [Concomitant]
     Indication: ASTHMA
  5. TOPROL-XL [Concomitant]
     Indication: ATRIAL FIBRILLATION
  6. LIPITOR [Concomitant]
     Indication: BLOOD CHOLESTEROL INCREASED
  7. PRADAXA [Suspect]
     Indication: ATRIAL FIBRILLATION
     Dosage: 300 MG
     Route: 048
     Dates: start: 20101201
  8. MULTIVITAMIN [Concomitant]
     Indication: PROPHYLAXIS
  9. ALTACE [Concomitant]
     Indication: HYPERTENSION
  10. OMEPRAZOLE [Concomitant]
     Indication: GASTROOESOPHAGEAL REFLUX DISEASE
  11. CLARINEX [Concomitant]
     Indication: NASAL DISORDER

REACTIONS (1)
  - FEELING HOT [None]
